FAERS Safety Report 9312391 (Version 1)
Quarter: 2013Q2

REPORT INFORMATION
  Report Type: Spontaneous
  Country: US (occurrence: None)
  Receive Date: 20130509
  Receipt Date: 20130509
  Transmission Date: 20140414
  Serious: Yes (Death)
  Sender: FDA-Public Use
  Company Number: 2013035778

PATIENT
  Age: 88 Year
  Sex: Male
  Weight: 73.48 kg

DRUGS (18)
  1. PRIVIGEN (IMMUNE GLOBULIN INTRAVENOUS (HUMAN) 10% LIQUID) [Suspect]
     Indication: GUILLAIN-BARRE SYNDROME
     Route: 042
  2. COREG (CARVEDILOL) [Concomitant]
  3. MORPHINE SULFATE (MORPHINE SULFATE) [Concomitant]
  4. LEVETIRACETAM (LEVETIRACETAM) [Concomitant]
  5. FISH OIL (FISH OIL) [Concomitant]
  6. PRILOSEC [Concomitant]
  7. HEMAX (MULTIVITAMINS W/MINERALS) [Concomitant]
  8. FLOMAX (TAMSULOSIN HYDROCHLORIDE) [Concomitant]
  9. CEFUROXIME AXETIL (CEFUROXIME AXETIL) [Concomitant]
  10. ACETAMINOPHEN (PARACETAMOL) [Concomitant]
  11. DIPHENHYDRAMINE (DIPHENHYDRAMINE) [Concomitant]
  12. HEPARIN (HEPARIN) [Concomitant]
  13. SODIUM CHLORIDE [Concomitant]
  14. EPI-PEN (EPINEPHRINE HYDROCHLORIDE) [Concomitant]
  15. DIGOXIN (DIGOXIN) [Concomitant]
  16. FERROUS SULFATE (FERROUS SULFATE) [Concomitant]
  17. NITROGLYCERIN (GLYCERYL TRINITRATE) [Concomitant]
  18. RANEXA (RANOLAZINE) [Concomitant]

REACTIONS (1)
  - Death [None]
